FAERS Safety Report 4674856-1 (Version None)
Quarter: 2005Q2

REPORT INFORMATION
  Report Type: 
  Country: None (occurrence: None)
  Receive Date: 20050519
  Receipt Date: 20050505
  Transmission Date: 20051028
  Serious: Yes (Death)
  Sender: FDA-Public Use
  Company Number: THYM-10517

PATIENT
  Age: 61 Year
  Sex: Male

DRUGS (9)
  1. THYMOGLOBULIN [Suspect]
     Indication: APLASTIC ANAEMIA
     Dosage: 2.5 MG ONCE IV
     Route: 042
  2. THYMOGLOBULIN [Suspect]
     Indication: APLASTIC ANAEMIA
     Dosage: 3.75 MG/KG QD IV
     Route: 042
  3. LYMPHOGLOBULINE [Suspect]
     Indication: APLASTIC ANAEMIA
     Dosage: 10 MG ONCE IV
     Route: 042
  4. LYMPHOGLOBULINE [Suspect]
     Indication: APLASTIC ANAEMIA
     Dosage: 15 MG/KG QD IV
     Route: 042
  5. LYMPHOGLOBULINE [Suspect]
     Indication: APLASTIC ANAEMIA
     Dosage: 15 MG/KG QD IV
     Route: 042
  6. HYDROCORTISONE [Concomitant]
  7. PIRITON [Concomitant]
  8. PREDNISOLONE [Concomitant]
  9. OXYMETHOLONE [Concomitant]

REACTIONS (1)
  - CEREBRAL HAEMORRHAGE [None]
